FAERS Safety Report 13625809 (Version 3)
Quarter: 2017Q4

REPORT INFORMATION
  Report Type: Spontaneous
  Country: CH (occurrence: CH)
  Receive Date: 20170607
  Receipt Date: 20171107
  Transmission Date: 20180320
  Serious: Yes (Hospitalization, Other)
  Sender: FDA-Public Use
  Company Number: CH-ASTRAZENECA-2017SE48467

PATIENT
  Age: 19324 Day
  Sex: Male
  Weight: 101.8 kg

DRUGS (15)
  1. VITAMIN D3 STREULI  DAFALGAN [Concomitant]
     Dosage: 1.5 EVERY MORNING
  2. DAFALGAN [Concomitant]
     Active Substance: ACETAMINOPHEN
     Indication: PAIN
  3. CRESTOR [Suspect]
     Active Substance: ROSUVASTATIN CALCIUM
     Indication: HYPERCHOLESTEROLAEMIA
     Route: 048
     Dates: start: 20161115
  4. MAGNESIOCARD ZESTRIL FRAGMIN [Concomitant]
     Dosage: AT MORNING
  5. FRAGMIN [Concomitant]
     Active Substance: DALTEPARIN SODIUM
     Dosage: 5000 IU
  6. CALCIMAGON D3 [Concomitant]
     Active Substance: CALCIUM\CHOLECALCIFEROL
     Dosage: 500/800 DAILY
     Route: 048
  7. SEREVENT DISKUS [Concomitant]
     Active Substance: SALMETEROL XINAFOATE
  8. VIT D3 SUPPLEMENT [Concomitant]
     Dosage: 12 DROPS DAILY
     Dates: start: 20160601
  9. SPASMO-CANULASE [Concomitant]
     Active Substance: AMYLASE\CELLULASE\GLUTAMIC ACID HYDROCHLORIDE\PANCRELIPASE\PEPSIN\PROTEASE
     Dosage: DAILY
  10. NACI [Concomitant]
     Active Substance: SODIUM CHLORIDE
  11. AXOTIDE [Concomitant]
     Active Substance: FLUTICASONE PROPIONATE
  12. EZETROL [Concomitant]
     Active Substance: EZETIMIBE
  13. JELONET [Concomitant]
  14. ZESTRIL [Concomitant]
     Active Substance: LISINOPRIL
  15. BETADINE [Concomitant]
     Active Substance: POVIDONE-IODINE

REACTIONS (7)
  - Compartment syndrome [Unknown]
  - Osteoporosis [Unknown]
  - Asthma [Unknown]
  - Rhabdomyolysis [Unknown]
  - Hypertension [Unknown]
  - Muscle necrosis [Recovered/Resolved with Sequelae]
  - Muscle disorder [Recovered/Resolved]

NARRATIVE: CASE EVENT DATE: 20170426
